FAERS Safety Report 15617629 (Version 1)
Quarter: 2018Q4

REPORT INFORMATION
  Report Type: Spontaneous
  Country: US (occurrence: US)
  Receive Date: 20181114
  Receipt Date: 20181114
  Transmission Date: 20190205
  Serious: Yes (Hospitalization)
  Sender: FDA-Public Use
  Company Number: None

PATIENT
  Age: 67 Year
  Sex: Male

DRUGS (19)
  1. ARICEPT [Concomitant]
     Active Substance: DONEPEZIL HYDROCHLORIDE
     Dates: start: 20180426
  2. STRESS B COM [Concomitant]
     Dates: start: 20180426
  3. TOPROL XL [Concomitant]
     Active Substance: METOPROLOL SUCCINATE
     Dates: start: 20180426
  4. GLATIRAMER [Suspect]
     Active Substance: GLATIRAMER
     Indication: MULTIPLE SCLEROSIS
     Dosage: ?          OTHER FREQUENCY:3 TIMES PER WEEK;?
     Route: 058
     Dates: start: 20180111
  5. ATROVENT [Concomitant]
     Active Substance: IPRATROPIUM BROMIDE
     Dates: start: 20180426
  6. COENZYME Q10 [Concomitant]
     Active Substance: UBIDECARENONE
     Dates: start: 20180426
  7. LASIX [Concomitant]
     Active Substance: FUROSEMIDE
     Dates: start: 20180426
  8. MUCINEX [Concomitant]
     Active Substance: GUAIFENESIN
     Dates: start: 20180426
  9. PROBENECID. [Concomitant]
     Active Substance: PROBENECID
     Dates: start: 20180426
  10. SINGULAIR [Concomitant]
     Active Substance: MONTELUKAST SODIUM
     Dates: start: 20180426
  11. SUPER B COM [Concomitant]
     Dates: start: 20180426
  12. ALTACE [Concomitant]
     Active Substance: RAMIPRIL
     Dates: start: 20180426
  13. ASPIRIN. [Concomitant]
     Active Substance: ASPIRIN
     Dates: start: 20180426
  14. MENS 50+ADV TAB [Concomitant]
     Dates: start: 20180426
  15. RANEXA [Concomitant]
     Active Substance: RANOLAZINE
     Dates: start: 20180426
  16. KLOR-CON [Concomitant]
     Active Substance: POTASSIUM CHLORIDE
     Dates: start: 20180426
  17. LIPITOR [Concomitant]
     Active Substance: ATORVASTATIN CALCIUM
     Dates: start: 20180426
  18. FISH OIL [Concomitant]
     Active Substance: FISH OIL
     Dates: start: 20180426
  19. PLAVIX [Concomitant]
     Active Substance: CLOPIDOGREL BISULFATE
     Dates: start: 20180426

REACTIONS (2)
  - Multiple sclerosis relapse [None]
  - Myocardial infarction [None]
